FAERS Safety Report 10806227 (Version 1)
Quarter: 2015Q1

REPORT INFORMATION
  Report Type: Report from Study
  Country: US (occurrence: US)
  Receive Date: 20150217
  Receipt Date: 20150217
  Transmission Date: 20150721
  Serious: No
  Sender: FDA-Public Use
  Company Number: US-ABBVIE-14K-163-1241282-00

PATIENT
  Sex: Female

DRUGS (1)
  1. HUMIRA [Suspect]
     Active Substance: ADALIMUMAB
     Indication: RHEUMATOID ARTHRITIS
     Dates: start: 201307

REACTIONS (6)
  - Vaginal infection [Not Recovered/Not Resolved]
  - Fungal infection [Unknown]
  - Abscess [Not Recovered/Not Resolved]
  - Vaginal odour [Not Recovered/Not Resolved]
  - Groin abscess [Not Recovered/Not Resolved]
  - Abscess fungal [Not Recovered/Not Resolved]

NARRATIVE: CASE EVENT DATE: 2013
